FAERS Safety Report 14078892 (Version 1)
Quarter: 2017Q4

REPORT INFORMATION
  Report Type: Spontaneous
  Country: US (occurrence: US)
  Receive Date: 20171012
  Receipt Date: 20171012
  Transmission Date: 20180321
  Serious: No
  Sender: FDA-Public Use
  Company Number: US-MYLANLABS-2017M1026377

PATIENT
  Sex: Female

DRUGS (5)
  1. MAPROTILINE [Suspect]
     Active Substance: MAPROTILINE
     Indication: DEPRESSION
     Dosage: 375 MG, QD
     Route: 048
     Dates: start: 1982, end: 1985
  2. MYRBETRIQ [Interacting]
     Active Substance: MIRABEGRON
     Indication: INCONTINENCE
  3. MAPROTILINE [Suspect]
     Active Substance: MAPROTILINE
     Indication: SEROTONIN SYNDROME
     Dosage: 375 MG, QD
     Route: 048
     Dates: start: 1985
  4. MYRBETRIQ [Interacting]
     Active Substance: MIRABEGRON
     Indication: MICTURITION URGENCY
     Dosage: 25 MG, QD
     Route: 048
     Dates: start: 20170212, end: 20170213
  5. THIAZIDE [Concomitant]
     Active Substance: UNSPECIFIED INGREDIENT
     Indication: BLOOD PRESSURE MEASUREMENT
     Dosage: UNK

REACTIONS (1)
  - Drug interaction [Unknown]
